FAERS Safety Report 6427866-8 (Version None)
Quarter: 2009Q4

REPORT INFORMATION
  Report Type: 
  Country: None (occurrence: None)
  Receive Date: 20091102
  Receipt Date: 20091015
  Transmission Date: 20100525
  Serious: Yes (Life-Threatening)
  Sender: FDA-Public Use
  Company Number: 1-20430112

PATIENT
  Age: 80 Year
  Sex: Female
  Weight: 54.8852 kg

DRUGS (6)
  1. ULTIVA [Suspect]
     Indication: ANAESTHESIA
  2. SEVOFLURANE [Suspect]
     Indication: MAINTENANCE OF ANAESTHESIA
     Dosage: INHALATION
     Route: 055
  3. ATROPINE [Suspect]
     Dosage: 0.5 MG, INTRAVENOUS
     Route: 042
  4. THIAMYLAL [Suspect]
     Indication: INDUCTION OF ANAESTHESIA
  5. ROCURONIUM BROMIDE [Suspect]
     Indication: INDUCTION OF ANAESTHESIA
  6. OXYGEN [Concomitant]

REACTIONS (2)
  - BLOOD PRESSURE IMMEASURABLE [None]
  - TORSADE DE POINTES [None]
